FAERS Safety Report 7869123-9 (Version None)
Quarter: 2011Q4

REPORT INFORMATION
  Report Type: 
  Country: None (occurrence: None)
  Receive Date: 20111028
  Receipt Date: 20101227
  Transmission Date: 20120403
  Serious: No
  Sender: FDA-Public Use
  Company Number: US-AMGEN-USASP2010012889

PATIENT
  Age: 49 Year
  Sex: Female
  Weight: 88.435 kg

DRUGS (13)
  1. METFORMIN [Concomitant]
  2. METHOTREXATE [Concomitant]
  3. LISINOPRIL [Concomitant]
  4. PREDNISONE [Concomitant]
  5. ENBREL [Suspect]
     Indication: RHEUMATOID ARTHRITIS
     Dosage: UNK
  6. BUPROPION HCL [Concomitant]
  7. CITALOPRAM HYDROBROMIDE [Concomitant]
  8. TOLTERODINE TARTRATE [Concomitant]
  9. ATORVASTATIN CALCIUM [Concomitant]
  10. FOLIC ACID ASPOL [Concomitant]
  11. ALBUTEROL SULFATE AUTOHALER [Concomitant]
  12. TOPIRAMATE [Concomitant]
  13. OXYCODONE HCL [Concomitant]

REACTIONS (8)
  - VOMITING [None]
  - HYPERSOMNIA [None]
  - DRUG INEFFECTIVE [None]
  - DECREASED APPETITE [None]
  - MEMORY IMPAIRMENT [None]
  - FATIGUE [None]
  - PYREXIA [None]
  - NAUSEA [None]
